FAERS Safety Report 9496463 (Version 1)
Quarter: 2013Q3

REPORT INFORMATION
  Report Type: Spontaneous
  Country: US (occurrence: None)
  Receive Date: 20130829
  Receipt Date: 20130829
  Transmission Date: 20140515
  Serious: Yes (Other)
  Sender: FDA-Public Use
  Company Number: IMP_06807_2013

PATIENT
  Age: 59 Year
  Sex: Male

DRUGS (4)
  1. OMEPRAZOLE [Suspect]
     Indication: GASTROOESOPHAGEAL REFLUX DISEASE
     Dates: start: 201009, end: 201108
  2. OMEPRAZOLE [Suspect]
     Indication: DYSPHAGIA
     Dates: start: 201009, end: 201108
  3. ATORVASTATIN [Suspect]
     Indication: PRODUCT USED FOR UNKNOWN INDICATION
     Dates: end: 201108
  4. GEMFIBROZIL [Suspect]
     Indication: PRODUCT USED FOR UNKNOWN INDICATION
     Dates: end: 201108

REACTIONS (7)
  - Asthenia [None]
  - Myalgia [None]
  - Polymyositis [None]
  - Rhabdomyolysis [None]
  - Inflammation [None]
  - Neuropathy peripheral [None]
  - Myopathy toxic [None]
